FAERS Safety Report 4731615-9 (Version None)
Quarter: 2005Q3

REPORT INFORMATION
  Report Type: 
  Country: None (occurrence: None)
  Receive Date: 20050729
  Receipt Date: 20050729
  Transmission Date: 20060218
  Serious: Yes (Other)
  Sender: FDA-Public Use
  Company Number: None

PATIENT
  Sex: Male
  Weight: 93 kg

DRUGS (12)
  1. TISSUE [Suspect]
     Indication: ACUTE MYELOID LEUKAEMIA
     Dosage: SEE IMAGE
     Dates: start: 20050309
  2. BUSULFAN [Suspect]
     Dosage: SEE IMAGE
     Route: 048
     Dates: start: 20050309, end: 20050313
  3. VP-16-213 [Suspect]
     Dosage: SEE IMAGE
     Route: 042
     Dates: start: 20050309, end: 20050313
  4. G-CSF [Suspect]
     Dosage: SEE IMAGE
     Route: 058
     Dates: start: 20050309, end: 20050403
  5. ACYCLOVIR [Concomitant]
  6. CAPTOPRIL [Concomitant]
  7. DIGOXIN [Concomitant]
  8. ERYTHROMYCIN [Concomitant]
  9. METOPROLOL [Concomitant]
  10. METRONIDAZOLE [Concomitant]
  11. PREVACID [Concomitant]
  12. VANCOMYCIN [Concomitant]

REACTIONS (13)
  - ABDOMINAL PAIN [None]
  - ANOREXIA [None]
  - AORTIC ATHEROSCLEROSIS [None]
  - CLOSTRIDIUM COLITIS [None]
  - COLITIS [None]
  - DIARRHOEA [None]
  - FAILURE TO THRIVE [None]
  - GASTRITIS [None]
  - HYPOTENSION [None]
  - ILEUS [None]
  - NAUSEA [None]
  - VASCULAR STENOSIS [None]
  - VOMITING [None]
